FAERS Safety Report 13864362 (Version 1)
Quarter: 2017Q3

REPORT INFORMATION
  Report Type: Spontaneous
  Country: CH (occurrence: CH)
  Receive Date: 20170814
  Receipt Date: 20170814
  Transmission Date: 20171127
  Serious: Yes (Hospitalization)
  Sender: FDA-Public Use
  Company Number: CH-SA-2017SA142826

PATIENT
  Age: 84 Year
  Sex: Female

DRUGS (22)
  1. RIFATER [Suspect]
     Active Substance: ISONIAZID\PYRAZINAMIDE\RIFAMPIN
     Indication: TUBERCULOSIS
     Dosage: DOSE-6 DRAGEES IN THE MORNING AT 6 AM
     Route: 048
     Dates: start: 20170722
  2. RIFATER [Suspect]
     Active Substance: ISONIAZID\PYRAZINAMIDE\RIFAMPIN
     Indication: TUBERCULOSIS
     Route: 065
  3. MYAMBUTOL [Concomitant]
     Active Substance: ETHAMBUTOL HYDROCHLORIDE
     Dosage: STRENGTH: 400 MG
     Route: 048
  4. REVLIMID [Concomitant]
     Active Substance: LENALIDOMIDE
     Dosage: STRENGTH: 10 MG
     Route: 048
  5. VITAMIN B6 [Concomitant]
     Active Substance: PYRIDOXINE HYDROCHLORIDE
     Dosage: STRENGTH: 40 MG
     Route: 048
  6. ATORVASTATIN CALCIUM. [Concomitant]
     Active Substance: ATORVASTATIN CALCIUM
     Dosage: STRENGTH: 20 MG
     Route: 048
  7. VI-DE 3 [Concomitant]
     Active Substance: CHOLECALCIFEROL
     Dosage: LIQUIDS, DROPS
     Route: 048
  8. LUMIGAN [Concomitant]
     Active Substance: BIMATOPROST
     Dosage: LIQUID DROPS
     Route: 047
  9. NITROGLYCERIN. [Concomitant]
     Active Substance: NITROGLYCERIN
     Dosage: CAPSULE CHEWABLE?STRENGTH: 0.8 MG
     Route: 065
  10. XYZAL [Concomitant]
     Active Substance: LEVOCETIRIZINE DIHYDROCHLORIDE
     Route: 048
  11. TRANSIPEG FORTE [Concomitant]
     Dosage: POWDER
     Route: 048
  12. METAMUCIL [Concomitant]
     Active Substance: PLANTAGO SEED
     Dosage: POWDER
     Route: 065
  13. VALTAN [Concomitant]
     Route: 048
  14. ELIQUIS [Concomitant]
     Active Substance: APIXABAN
     Dosage: STRENGTH: 5 MG
     Route: 048
  15. OCULOSAN [Concomitant]
     Route: 047
  16. ECOFENAC [Concomitant]
     Active Substance: DICLOFENAC SODIUM
     Dosage: ECOFENAC CR 75 MG
     Route: 048
  17. PROTAGENT SE [Concomitant]
     Dosage: PROTAGENT SB (POVIDONE K 25)
     Route: 047
  18. OMEPRAZOLE. [Concomitant]
     Active Substance: OMEPRAZOLE
     Dosage: 20/40 MG
     Route: 048
  19. TEMESTA [Concomitant]
     Active Substance: LORAZEPAM
     Dosage: STRENGTH: 1 MG
     Route: 065
  20. SYMBICORT [Concomitant]
     Active Substance: BUDESONIDE\FORMOTEROL FUMARATE DIHYDRATE
     Dosage: STRENGTH: 200/6?FORM: POWDERS, UNIT DOSE
     Route: 065
  21. TRITTICO [Concomitant]
     Active Substance: TRAZODONE HYDROCHLORIDE
     Dosage: STRENGTH: 100 MG
     Route: 048
  22. ITINEROL [Concomitant]
     Active Substance: CAFFEINE\MECLIZINE MONOHYDROCHLORIDE\PYRIDOXINE HYDROCHLORIDE
     Route: 048

REACTIONS (1)
  - Acute generalised exanthematous pustulosis [Recovering/Resolving]
